FAERS Safety Report 4348974-1 (Version None)
Quarter: 2004Q2

REPORT INFORMATION
  Report Type: 
  Country: None (occurrence: None)
  Receive Date: 20040428
  Receipt Date: 20040408
  Transmission Date: 20050107
  Serious: Yes (Death, Life-Threatening, Hospitalization)
  Sender: FDA-Public Use
  Company Number: 200413985GDDC

PATIENT
  Age: 61 Year
  Sex: Female

DRUGS (6)
  1. LEFLUNOMIDE [Suspect]
     Indication: RHEUMATOID ARTHRITIS
     Route: 048
     Dates: start: 20030819, end: 20040129
  2. METHOTREXATE [Concomitant]
     Indication: RHEUMATOID ARTHRITIS
     Route: 030
     Dates: start: 20000514, end: 20040129
  3. PREDNISOLONE [Concomitant]
     Indication: RHEUMATOID ARTHRITIS
     Dosage: DOSE: 2.5/7.5
     Route: 048
     Dates: start: 20000501, end: 20040129
  4. MELOXICAM [Concomitant]
     Indication: RHEUMATOID ARTHRITIS
     Route: 048
     Dates: start: 20000525, end: 20040129
  5. RISEDRONATE [Concomitant]
     Indication: OSTEOPOROSIS
     Route: 048
     Dates: start: 20030905, end: 20040129
  6. FOLIC ACID [Concomitant]
     Dosage: DOSE: UNK

REACTIONS (7)
  - ACUTE RESPIRATORY DISTRESS SYNDROME [None]
  - MULTI-ORGAN FAILURE [None]
  - PNEUMOCYSTIS CARINII INFECTION [None]
  - PNEUMONIA [None]
  - PNEUMONITIS [None]
  - RENAL FAILURE [None]
  - SEPSIS [None]
